FAERS Safety Report 8763017 (Version 2)
Quarter: 2013Q1

REPORT INFORMATION
  Report Type: Spontaneous
  Country: BR (occurrence: None)
  Receive Date: 20120824
  Receipt Date: 20120824
  Transmission Date: 20140127
  Serious: Yes (Other)
  Sender: FDA-Public Use
  Company Number: EUS-2012-00687

PATIENT
  Age: 5 Year
  Sex: Female

DRUGS (1)
  1. ASPARAGINASE [Suspect]
     Indication: ACUTE LYMPHOCYTIC LEUKAEMIA

REACTIONS (7)
  - Hypovolaemic shock [None]
  - Pancreatitis haemorrhagic [None]
  - Ecchymosis [None]
  - Pancreatic cyst [None]
  - Neutrophil percentage decreased [None]
  - Systemic inflammatory response syndrome [None]
  - Haemoglobin decreased [None]
